FAERS Safety Report 6850190-6 (Version None)
Quarter: 2010Q3

REPORT INFORMATION
  Report Type: 
  Country: None (occurrence: None)
  Receive Date: 20100716
  Receipt Date: 20071009
  Transmission Date: 20110219
  Serious: No
  Sender: FDA-Public Use
  Company Number: US-PFIZER INC-2007086241

PATIENT
  Sex: Female
  Weight: 100 kg

DRUGS (7)
  1. CHANTIX [Suspect]
     Indication: SMOKING CESSATION THERAPY
     Dates: start: 20070801
  2. VYTORIN [Concomitant]
  3. LEXAPRO [Concomitant]
  4. HYDROCHLOROTHIAZIDE [Concomitant]
  5. POTASSIUM CHLORIDE [Concomitant]
  6. VALSARTAN [Concomitant]
  7. VITAMINS [Concomitant]

REACTIONS (4)
  - ABNORMAL DREAMS [None]
  - BLOOD PRESSURE INCREASED [None]
  - HEART RATE INCREASED [None]
  - NIGHT SWEATS [None]
